FAERS Safety Report 5635568-0 (Version None)
Quarter: 2008Q1

REPORT INFORMATION
  Report Type: 
  Country: None (occurrence: None)
  Receive Date: 20080222
  Receipt Date: 20080212
  Transmission Date: 20080703
  Serious: Yes (Other)
  Sender: FDA-Public Use
  Company Number: FR-PFIZER INC-2008015830

PATIENT
  Age: 47 Year
  Sex: Male

DRUGS (2)
  1. CHANTIX [Suspect]
     Dates: start: 20071202, end: 20080128
  2. METOPROLOL TARTRATE [Concomitant]

REACTIONS (5)
  - FEELING ABNORMAL [None]
  - HYPOKINESIA [None]
  - PETIT MAL EPILEPSY [None]
  - PRURITUS [None]
  - SLEEP DISORDER [None]
